FAERS Safety Report 9294227 (Version 3)
Quarter: 2013Q2

REPORT INFORMATION
  Report Type: Spontaneous
  Country: US (occurrence: US)
  Receive Date: 20130516
  Receipt Date: 20130617
  Transmission Date: 20140414
  Serious: No
  Sender: FDA-Public Use
  Company Number: US-PFIZER INC-2013150873

PATIENT
  Age: 41 Year
  Sex: Female
  Weight: 90.7 kg

DRUGS (5)
  1. ZOLOFT [Suspect]
     Indication: HALLUCINATION
     Dosage: 25 MG, UNK
     Dates: start: 1998
  2. ZOLOFT [Suspect]
     Indication: ANXIETY
     Dosage: 50 MG, UNK
  3. ZOLOFT [Suspect]
     Indication: PANIC ATTACK
     Dosage: 75 MG, UNK
     Dates: start: 2007
  4. ZOLOFT [Suspect]
     Dosage: 100 MG, UNK
     Dates: start: 201305
  5. BIOTIN [Concomitant]
     Dosage: UNK, DAILY

REACTIONS (9)
  - Drug ineffective [Unknown]
  - Vitamin D decreased [Unknown]
  - Restlessness [Unknown]
  - Dry mouth [Unknown]
  - Feeling jittery [Unknown]
  - Tearfulness [Unknown]
  - Abdominal discomfort [Unknown]
  - Off label use [Unknown]
  - Feeling abnormal [Unknown]
